FAERS Safety Report 7995584-0 (Version None)
Quarter: 2011Q4

REPORT INFORMATION
  Report Type: 
  Country: None (occurrence: None)
  Receive Date: 20111220
  Receipt Date: 20111213
  Transmission Date: 20120403
  Serious: Yes (Hospitalization)
  Sender: FDA-Public Use
  Company Number: JP-MERCK-1111USA03836

PATIENT
  Age: 73 Year
  Sex: Male

DRUGS (3)
  1. PEPCID RPD [Suspect]
     Indication: GASTRITIS
     Route: 048
     Dates: start: 20110214, end: 20110218
  2. ZITHROMAX [Suspect]
     Indication: BRONCHITIS
     Route: 048
     Dates: start: 20110214, end: 20110216
  3. INDOMETHACIN [Suspect]
     Indication: PYREXIA
     Route: 048
     Dates: start: 20110214, end: 20110218

REACTIONS (2)
  - DRUG ERUPTION [None]
  - LIVER DISORDER [None]
